FAERS Safety Report 9209408 (Version 1)
Quarter: 2013Q2

REPORT INFORMATION
  Report Type: Spontaneous
  Country: US (occurrence: None)
  Receive Date: 20130403
  Receipt Date: 20130403
  Transmission Date: 20140414
  Serious: Yes (Other)
  Sender: FDA-Public Use
  Company Number: None

PATIENT
  Sex: Male
  Weight: 74.84 kg

DRUGS (1)
  1. TRAMADOL HYDROCHLORIDE [Suspect]
     Indication: PAIN
     Dosage: 5 TABLETS DAILY MOUTH
     Route: 048

REACTIONS (4)
  - Dysarthria [None]
  - Tongue paralysis [None]
  - Oral disorder [None]
  - Unevaluable event [None]
